FAERS Safety Report 20956375 (Version 1)
Quarter: 2022Q2

REPORT INFORMATION
  Report Type: Spontaneous
  Country: US (occurrence: None)
  Receive Date: 20220614
  Receipt Date: 20220614
  Transmission Date: 20220721
  Serious: Yes (Hospitalization)
  Sender: FDA-Public Use
  Company Number: None

PATIENT
  Age: 70 Year
  Sex: Male
  Weight: 80 kg

DRUGS (2)
  1. VANCOMYCIN HYDROCHLORIDE [Suspect]
     Active Substance: VANCOMYCIN HYDROCHLORIDE
     Indication: Device related infection
     Dosage: 1250 MG ONCE IV
     Route: 042
     Dates: start: 20220119, end: 20220119
  2. CEFEPIME HYDROCHLORIDE [Suspect]
     Active Substance: CEFEPIME HYDROCHLORIDE
     Indication: Device related infection
     Dosage: 2 GM ONCE IV
     Route: 042
     Dates: start: 20220121, end: 20220121

REACTIONS (3)
  - Tenderness [None]
  - Exfoliative rash [None]
  - Pruritus [None]

NARRATIVE: CASE EVENT DATE: 20220127
